FAERS Safety Report 23142499 (Version 1)
Quarter: 2023Q4

REPORT INFORMATION
  Report Type: Spontaneous
  Country: US (occurrence: None)
  Receive Date: 20231102
  Receipt Date: 20231102
  Transmission Date: 20240109
  Serious: Yes (unspecified)
  Sender: FDA-Public Use
  Company Number: None

PATIENT
  Age: 44 Year
  Sex: Female
  Weight: 63 kg

DRUGS (1)
  1. NAPHAZOLINE HYDROCHLORIDE [Suspect]
     Active Substance: NAPHAZOLINE HYDROCHLORIDE
     Indication: Eye disorder

REACTIONS (4)
  - Eye irritation [None]
  - Eye irritation [None]
  - Fear [None]
  - Instillation site irritation [None]

NARRATIVE: CASE EVENT DATE: 20230101
